FAERS Safety Report 24738427 (Version 1)
Quarter: 2024Q4

REPORT INFORMATION
  Report Type: Spontaneous
  Country: US (occurrence: US)
  Receive Date: 20241216
  Receipt Date: 20241216
  Transmission Date: 20250114
  Serious: Yes (Other)
  Sender: MYLAN
  Company Number: US-MYLANLABS-2024M1111181

PATIENT
  Age: 77 Year
  Sex: Female

DRUGS (2)
  1. LEVOTHYROXINE [Suspect]
     Active Substance: LEVOTHYROXINE
     Indication: Post procedural hypothyroidism
     Dosage: 50 MICROGRAM, QD
     Route: 065
  2. SYNTHROID [Suspect]
     Active Substance: LEVOTHYROXINE SODIUM
     Indication: Post procedural hypothyroidism
     Dosage: 50 MICROGRAM
     Route: 065

REACTIONS (2)
  - Type IV hypersensitivity reaction [Recovered/Resolved]
  - Reaction to excipient [Recovered/Resolved]
